FAERS Safety Report 8212092-2 (Version None)
Quarter: 2012Q1

REPORT INFORMATION
  Report Type: 
  Country: None (occurrence: None)
  Receive Date: 20120315
  Receipt Date: 20120309
  Transmission Date: 20120608
  Serious: Yes (Death, Hospitalization)
  Sender: FDA-Public Use
  Company Number: PHHY2012JP011841

PATIENT
  Sex: Female

DRUGS (5)
  1. ALISKIREN [Suspect]
     Indication: HYPERTENSION
     Dosage: 150 MG
     Route: 048
     Dates: start: 20100623, end: 20110120
  2. ASPIRIN [Concomitant]
     Dosage: 100 MG
     Route: 048
     Dates: start: 20100420, end: 20110123
  3. KAMAG G [Concomitant]
     Dosage: 2 G
     Route: 048
     Dates: start: 20100420, end: 20110123
  4. ATELEC [Concomitant]
     Indication: HYPERTENSION
     Dosage: 10 MG
     Route: 048
     Dates: start: 20101215, end: 20110120
  5. MERISLON [Concomitant]
     Dosage: 18 MG
     Route: 048
     Dates: start: 20100420, end: 20100817

REACTIONS (4)
  - PYREXIA [None]
  - PLATELET COUNT DECREASED [None]
  - HEPATIC FAILURE [None]
  - DISSEMINATED INTRAVASCULAR COAGULATION [None]
